FAERS Safety Report 26149403 (Version 1)
Quarter: 2025Q4

REPORT INFORMATION
  Report Type: Spontaneous
  Country: US (occurrence: US)
  Receive Date: 20251212
  Receipt Date: 20251212
  Transmission Date: 20260118
  Serious: Yes (Hospitalization, Other)
  Sender: NORTHSTAR
  Company Number: US-NORTHSTAR RX LLC-US-2025NSR000099

PATIENT
  Age: 77 Year
  Sex: Male

DRUGS (1)
  1. BACLOFEN [Suspect]
     Active Substance: BACLOFEN
     Indication: Hiccups
     Dosage: 5 MILLIGRAM, TID, 4 TOTAL DOSES
     Route: 048

REACTIONS (2)
  - Neurotoxicity [Recovered/Resolved]
  - Mental status changes [Recovered/Resolved]
